FAERS Safety Report 14282116 (Version 2)
Quarter: 2018Q1

REPORT INFORMATION
  Report Type: Report from Study
  Country: BR (occurrence: BR)
  Receive Date: 20171213
  Receipt Date: 20180129
  Transmission Date: 20180508
  Serious: Yes (Hospitalization)
  Sender: FDA-Public Use
  Company Number: BR-UCBSA-2017049657

PATIENT
  Age: 56 Year
  Sex: Female
  Weight: 66 kg

DRUGS (2)
  1. CERTOLIZUMAB PEGOL [Suspect]
     Active Substance: CERTOLIZUMAB PEGOL
     Indication: RHEUMATOID ARTHRITIS
     Dosage: 400 MG, MONTHLY (QM)
     Dates: start: 20171010
  2. NIMESULIDE [Concomitant]
     Active Substance: NIMESULIDE
     Indication: ANALGESIC THERAPY
     Dosage: UNK
     Route: 048
     Dates: start: 2013

REACTIONS (7)
  - Asthenia [Recovered/Resolved]
  - Lung disorder [Recovered/Resolved]
  - Loss of personal independence in daily activities [Not Recovered/Not Resolved]
  - Dyspnoea [Recovered/Resolved]
  - Fatigue [Not Recovered/Not Resolved]
  - Pneumonia [Recovered/Resolved]
  - Decreased appetite [Recovered/Resolved]

NARRATIVE: CASE EVENT DATE: 201710
